FAERS Safety Report 8806831 (Version 1)
Quarter: 2012Q4

REPORT INFORMATION
  Report Type: 
  Country: US (occurrence: US)
  Receive Date: 20120925
  Receipt Date: 20120925
  Transmission Date: 20130627
  Serious: Yes (Death)
  Sender: FDA-Public Use
  Company Number: US-ELI_LILLY_AND_COMPANY-US201209006199

PATIENT
  Sex: Female

DRUGS (4)
  1. HUMALOG LISPRO [Suspect]
     Indication: DIABETES MELLITUS
     Dosage: 10 u, qid
  2. LIPITOR [Concomitant]
     Dosage: UNK, unknown
  3. LANTUS [Concomitant]
     Dosage: UNK, unknown
  4. ATACAND [Concomitant]
     Dosage: UNK, unknown

REACTIONS (1)
  - Death [Fatal]
